FAERS Safety Report 19980479 (Version 3)
Quarter: 2021Q4

REPORT INFORMATION
  Report Type: Spontaneous
  Country: JP (occurrence: None)
  Receive Date: 20211021
  Receipt Date: 20211119
  Transmission Date: 20220303
  Serious: Yes (Other)
  Sender: FDA-Public Use
  Company Number: 2021A774407

PATIENT
  Age: 74 Year
  Sex: Male

DRUGS (2)
  1. LYNPARZA [Suspect]
     Active Substance: OLAPARIB
     Indication: Breast cancer recurrent
     Dosage: DOSE UNKNOWN
     Route: 048
  2. NEXIUM [Concomitant]
     Active Substance: ESOMEPRAZOLE MAGNESIUM
     Indication: Gastrooesophageal reflux disease
     Dosage: DOSE UNKNOWN
     Route: 048

REACTIONS (1)
  - Gastrointestinal lymphoma [Unknown]

NARRATIVE: CASE EVENT DATE: 20211007
